FAERS Safety Report 5720839-X (Version None)
Quarter: 2008Q2

REPORT INFORMATION
  Report Type: 
  Country: None (occurrence: None)
  Receive Date: 20080429
  Receipt Date: 20080422
  Transmission Date: 20081010
  Serious: Yes (Other)
  Sender: FDA-Public Use
  Company Number: PHNU2008DE01642

PATIENT

DRUGS (1)
  1. SANDIMMUNE [Suspect]
     Indication: TRANSPLANT

REACTIONS (1)
  - MUSCLE SPASTICITY [None]
